FAERS Safety Report 14882431 (Version 2)
Quarter: 2018Q3

REPORT INFORMATION
  Report Type: Spontaneous
  Country: US (occurrence: US)
  Receive Date: 20180511
  Receipt Date: 20180804
  Transmission Date: 20181010
  Serious: No
  Sender: FDA-Public Use
  Company Number: US-009507513-1805USA003334

PATIENT
  Age: 24 Year
  Sex: Female

DRUGS (4)
  1. EMTRICITABINE (+) TENOFOVIR DISOPROXIL FUMARATE [Suspect]
     Active Substance: EMTRICITABINE\TENOFOVIR DISOPROXIL
     Dosage: UNK; TOTAL DAILY DOSE: 1 (UNITS UNSPECIFIED); COURSE NUMBER: 1
     Route: 048
     Dates: start: 201104
  2. ZIDOVUDINE. [Suspect]
     Active Substance: ZIDOVUDINE
     Dosage: UNK; TOTAL DAILY DOSE: 1 (UNIT UNSPECIFIED); COURSE NUMBER: 2
     Route: 042
     Dates: start: 201104
  3. ZIDOVUDINE. [Suspect]
     Active Substance: ZIDOVUDINE
     Dosage: UNK; TOTAL DAILY DOSE: 2 (UNIT UNSPECIFIED); COURSE NUMBER: 1
     Route: 042
     Dates: start: 201104
  4. ISENTRESS [Suspect]
     Active Substance: RALTEGRAVIR POTASSIUM
     Dosage: UNK; TOTAL DAILY DOSE: 800 (UNITS UNSPECIFIED); COURSE NUMBER: 1
     Route: 048
     Dates: start: 201104

REACTIONS (2)
  - Maternal exposure during pregnancy [Recovered/Resolved]
  - No adverse event [Unknown]
